FAERS Safety Report 5381594-9 (Version None)
Quarter: 2007Q3

REPORT INFORMATION
  Report Type: 
  Country: None (occurrence: None)
  Receive Date: 20070709
  Receipt Date: 20070704
  Transmission Date: 20080115
  Serious: Yes (Life-Threatening, Hospitalization)
  Sender: FDA-Public Use
  Company Number: HQWYE916205JUL07

PATIENT
  Sex: Female
  Weight: 50 kg

DRUGS (5)
  1. TYGACIL [Suspect]
     Indication: SEPTIC SHOCK
     Route: 042
     Dates: start: 20070615, end: 20070620
  2. LOVASTATIN [Concomitant]
     Indication: HYPERCHOLESTEROLAEMIA
     Dosage: 40 MG DAILY
  3. GLUCERNA ^ABBOTT^ [Concomitant]
     Indication: NUTRITIONAL SUPPORT
     Dosage: 1000 CC
     Dates: start: 20070614
  4. CEFEPIME [Concomitant]
     Indication: SEPSIS
     Dates: start: 20070610, end: 20070620
  5. FLUCONAZOLE [Suspect]
     Indication: SYSTEMIC CANDIDA
     Dosage: 200 MG DAILY
     Route: 042
     Dates: start: 20070615, end: 20070623

REACTIONS (1)
  - TOXIC EPIDERMAL NECROLYSIS [None]
